FAERS Safety Report 12817931 (Version 3)
Quarter: 2017Q1

REPORT INFORMATION
  Report Type: Spontaneous
  Country: JP (occurrence: JP)
  Receive Date: 20161006
  Receipt Date: 20170126
  Transmission Date: 20170428
  Serious: Yes (Hospitalization)
  Sender: FDA-Public Use
  Company Number: JP-TAKEDA-2016TJP020758

PATIENT
  Age: 77 Year
  Sex: Female
  Weight: 74 kg

DRUGS (10)
  1. MICOMBI COMBINATION [Concomitant]
     Active Substance: HYDROCHLOROTHIAZIDE\TELMISARTAN
     Indication: HYPERTENSION
     Dosage: 1 DF, QD
     Route: 048
     Dates: end: 20160925
  2. VALPROATE SODIUM. [Concomitant]
     Active Substance: VALPROATE SODIUM
     Indication: EPILEPSY
     Dosage: 400 MG, QD
     Route: 048
     Dates: end: 20160918
  3. ETIZOLAM [Concomitant]
     Active Substance: ETIZOLAM
     Indication: INSOMNIA
     Dosage: 1.5 MG, TID
     Route: 048
     Dates: end: 20160918
  4. BETANIS [Concomitant]
     Active Substance: MIRABEGRON
     Dosage: 25 MG, QD
     Route: 048
     Dates: end: 20160920
  5. CELECOX [Concomitant]
     Active Substance: CELECOXIB
     Indication: ARTHRALGIA
     Dosage: 200 MG, BID
     Route: 048
     Dates: end: 20160914
  6. REBAMIPIDE [Concomitant]
     Active Substance: REBAMIPIDE
     Indication: PROPHYLAXIS AGAINST GASTROINTESTINAL ULCER
     Dosage: 200 MG, BID
     Route: 048
     Dates: end: 20160914
  7. AZELNIDIPINE [Concomitant]
     Active Substance: AZELNIDIPINE
     Dosage: 8 MG, QD
     Route: 048
     Dates: end: 20160918
  8. SELARA [Concomitant]
     Active Substance: EPLERENONE
     Indication: HYPERTENSION
     Dosage: 50 MG, QD
     Route: 048
     Dates: end: 20160918
  9. NESINA [Suspect]
     Active Substance: ALOGLIPTIN BENZOATE
     Indication: DIABETES MELLITUS
     Dosage: 25 MG, QD
     Route: 048
     Dates: end: 20160914
  10. METACT [Concomitant]
     Active Substance: METFORMIN HYDROCHLORIDE\PIOGLITAZONE HYDROCHLORIDE
     Indication: DIABETES MELLITUS
     Dosage: 1 DF, QD
     Route: 048
     Dates: end: 20160918

REACTIONS (1)
  - Pemphigoid [Recovering/Resolving]

NARRATIVE: CASE EVENT DATE: 201605
